FAERS Safety Report 10102801 (Version 1)
Quarter: 2014Q2

REPORT INFORMATION
  Report Type: Report from Study
  Country: CA (occurrence: CA)
  Receive Date: 20140424
  Receipt Date: 20140424
  Transmission Date: 20141212
  Serious: Yes (Other)
  Sender: FDA-Public Use
  Company Number: CA-JNJFOC-20140412424

PATIENT
  Age: 16 Year
  Sex: Male
  Weight: 70 kg

DRUGS (4)
  1. REMICADE [Suspect]
     Indication: CROHN^S DISEASE
     Dosage: ONCE IN 6 TO 7 WEEKS
     Route: 042
  2. BENADRYL [Concomitant]
     Route: 065
  3. TYLENOL [Concomitant]
     Route: 065
  4. SOLU MEDROL [Concomitant]
     Route: 065

REACTIONS (2)
  - Ligament rupture [Recovered/Resolved]
  - Sports injury [Recovered/Resolved]
